FAERS Safety Report 5376157-5 (Version None)
Quarter: 2007Q3

REPORT INFORMATION
  Report Type: 
  Country: None (occurrence: None)
  Receive Date: 20070702
  Receipt Date: 20070625
  Transmission Date: 20080115
  Serious: Yes (Hospitalization)
  Sender: FDA-Public Use
  Company Number: FR-ASTRAZENECA-2007CG00969

PATIENT
  Age: 48 Year
  Sex: Female
  Weight: 71 kg

DRUGS (8)
  1. PULMICORT [Suspect]
     Route: 055
  2. SYMBICORT [Suspect]
     Route: 055
  3. OMEPRAZOLE [Suspect]
     Route: 048
  4. IZILOX [Suspect]
     Indication: PNEUMONIA
     Route: 048
     Dates: start: 20070503, end: 20070516
  5. IMOVANE [Suspect]
     Indication: SLEEP DISORDER
     Route: 048
     Dates: start: 20070504, end: 20070525
  6. CORTANCYL [Suspect]
     Indication: POLYARTHRITIS
     Route: 048
  7. TRAMADOL HCL [Suspect]
     Route: 048
  8. SPIRIVA [Suspect]

REACTIONS (2)
  - LEUKOPENIA [None]
  - NEUTROPENIA [None]
